FAERS Safety Report 22026679 (Version 3)
Quarter: 2024Q3

REPORT INFORMATION
  Report Type: Spontaneous
  Country: US (occurrence: US)
  Receive Date: 20230223
  Receipt Date: 20240917
  Transmission Date: 20241017
  Serious: No
  Sender: ROCHE
  Company Number: US-ROCHE-3182493

PATIENT
  Age: 58 Year
  Sex: Female

DRUGS (3)
  1. XOLAIR PFS [Suspect]
     Active Substance: OMALIZUMAB
     Indication: Asthma
     Dosage: STRENGTHS 150 MG/ ML
     Route: 058
     Dates: start: 20190724
  2. XOLAIR PFS [Suspect]
     Active Substance: OMALIZUMAB
     Route: 058
     Dates: start: 201907
  3. XOLAIR PFS [Suspect]
     Active Substance: OMALIZUMAB
     Route: 058
     Dates: start: 202211

REACTIONS (5)
  - Dyspnoea [Recovered/Resolved]
  - Swelling [Unknown]
  - Asthma [Unknown]
  - Anxiety [Unknown]
  - Asthma [Unknown]

NARRATIVE: CASE EVENT DATE: 20220830
